FAERS Safety Report 20564656 (Version 1)
Quarter: 2022Q1

REPORT INFORMATION
  Report Type: Spontaneous
  Country: US (occurrence: US)
  Receive Date: 20220308
  Receipt Date: 20220308
  Transmission Date: 20220423
  Serious: Yes (Hospitalization, Other)
  Sender: FDA-Public Use
  Company Number: US-ABBVIE-22K-163-4298760-00

PATIENT

DRUGS (1)
  1. HUMIRA [Suspect]
     Active Substance: ADALIMUMAB
     Indication: Rheumatoid arthritis
     Route: 058
     Dates: start: 2019

REACTIONS (16)
  - Traumatic liver injury [Recovering/Resolving]
  - Endometriosis [Not Recovered/Not Resolved]
  - Oesophageal rupture [Recovering/Resolving]
  - Lung perforation [Recovering/Resolving]
  - Joint dislocation [Recovering/Resolving]
  - Loss of consciousness [Recovered/Resolved]
  - Coma [Recovering/Resolving]
  - Anaemia [Not Recovered/Not Resolved]
  - Cerebral haemorrhage [Not Recovered/Not Resolved]
  - Hip fracture [Recovering/Resolving]
  - Rib fracture [Recovering/Resolving]
  - Incorrect dose administered [Recovered/Resolved]
  - Injection site haemorrhage [Recovered/Resolved]
  - Device issue [Recovered/Resolved]
  - Contusion [Not Recovered/Not Resolved]
  - Blood iron decreased [Not Recovered/Not Resolved]

NARRATIVE: CASE EVENT DATE: 20211113
